FAERS Safety Report 8015066-X (Version None)
Quarter: 2011Q4

REPORT INFORMATION
  Report Type: 
  Country: None (occurrence: None)
  Receive Date: 20111230
  Receipt Date: 20111219
  Transmission Date: 20120403
  Serious: No
  Sender: FDA-Public Use
  Company Number: US-BIOGENIDEC-2011BI047974

PATIENT
  Age: 49 Year
  Sex: Female

DRUGS (1)
  1. TYSABRI [Suspect]
     Indication: MULTIPLE SCLEROSIS
     Route: 042
     Dates: start: 20091201

REACTIONS (7)
  - FALL [None]
  - HEMIPARESIS [None]
  - LOSS OF CONTROL OF LEGS [None]
  - ASTHENIA [None]
  - TEMPERATURE INTOLERANCE [None]
  - HYPOAESTHESIA ORAL [None]
  - FATIGUE [None]
